FAERS Safety Report 5975405-8 (Version None)
Quarter: 2008Q4

REPORT INFORMATION
  Report Type: 
  Country: None (occurrence: None)
  Receive Date: 20081202
  Receipt Date: 20081124
  Transmission Date: 20090506
  Serious: Yes (Life-Threatening, Hospitalization)
  Sender: FDA-Public Use
  Company Number: DE-ASTRAZENECA-2008PK02568

PATIENT
  Age: 23 Year
  Sex: Female
  Weight: 46 kg

DRUGS (2)
  1. PROPOFOL [Suspect]
     Indication: SEDATION
     Route: 042
  2. MIDAZOLAM HCL [Concomitant]
     Indication: BRONCHOSCOPY
     Route: 042

REACTIONS (7)
  - BRADYCARDIA [None]
  - CARDIOGENIC SHOCK [None]
  - CARDIOVASCULAR INSUFFICIENCY [None]
  - HYPOVENTILATION [None]
  - LEFT VENTRICULAR FAILURE [None]
  - METABOLIC ACIDOSIS [None]
  - OXYGEN SATURATION DECREASED [None]
